FAERS Safety Report 4909933-0 (Version None)
Quarter: 2006Q1

REPORT INFORMATION
  Report Type: 
  Country: None (occurrence: None)
  Receive Date: 20060208
  Receipt Date: 20060131
  Transmission Date: 20060701
  Serious: Yes (Hospitalization)
  Sender: FDA-Public Use
  Company Number: 2005-11-1365

PATIENT
  Age: 55 Year
  Sex: Male
  Weight: 81 kg

DRUGS (3)
  1. PEG-INTRON (PEGINTERFERON ALFA-2B) INJECTABLE POWDER [Suspect]
     Indication: HEPATITIS C
     Dosage: 120 MCG QW SUBCUTANEOUS;
     Route: 058
     Dates: start: 20050325
  2. REBETOL [Suspect]
     Indication: HEPATITIS C
     Dosage: 800-600 MG ORAL
     Route: 058
     Dates: start: 20050325, end: 20050818
  3. REBETOL [Suspect]
     Indication: HEPATITIS C
     Dosage: 800-600 MG ORAL
     Route: 058
     Dates: start: 20050819

REACTIONS (2)
  - MALAISE [None]
  - RETINAL DETACHMENT [None]
